FAERS Safety Report 13638825 (Version 4)
Quarter: 2017Q3

REPORT INFORMATION
  Report Type: Report from Study
  Country: DE (occurrence: DE)
  Receive Date: 20170609
  Receipt Date: 20170915
  Transmission Date: 20171127
  Serious: Yes (Other)
  Sender: FDA-Public Use
  Company Number: DE-VERTEX PHARMACEUTICALS-2017-002970

PATIENT
  Age: 52 Year
  Sex: Female
  Weight: 73 kg

DRUGS (13)
  1. VITAMIN D [Concomitant]
     Active Substance: CHOLECALCIFEROL
     Indication: HYPOVITAMINOSIS
     Dosage: 1000IU, QD
     Route: 048
  2. SALBUTAMOL [Concomitant]
     Active Substance: ALBUTEROL
     Dosage: 2 DF, QD
     Route: 055
     Dates: start: 2010
  3. VX-661/VX-770 [Suspect]
     Active Substance: INVESTIGATIONAL PRODUCT
     Indication: CYSTIC FIBROSIS
     Dosage: 100 MG, QD
     Route: 048
     Dates: start: 20160920, end: 20170601
  4. VX-770/VX-661 [Suspect]
     Active Substance: INVESTIGATIONAL PRODUCT
     Indication: CYSTIC FIBROSIS
     Dosage: 150 MG, BID
     Route: 048
     Dates: start: 20160920, end: 20170601
  5. MUCOCLEAR [Concomitant]
     Indication: CYSTIC FIBROSIS LUNG
     Dosage: 4 ML, QD
     Route: 055
     Dates: start: 2010
  6. VERAPAMIL [Concomitant]
     Active Substance: VERAPAMIL HYDROCHLORIDE
     Indication: HYPERTENSION
     Dosage: 120 MG, BID
     Route: 048
     Dates: start: 2010
  7. VIANI [Concomitant]
     Active Substance: FLUTICASONE PROPIONATE\SALMETEROL XINAFOATE
     Indication: CYSTIC FIBROSIS LUNG
     Dosage: 50/250 MG, BID
     Route: 055
     Dates: start: 2010
  8. NASONEX [Concomitant]
     Active Substance: MOMETASONE FUROATE
     Indication: CYSTIC FIBROSIS LUNG
     Dosage: 1 DF, QD
     Route: 045
     Dates: start: 2010
  9. URSOFALK [Concomitant]
     Active Substance: URSODIOL
     Indication: CYSTIC FIBROSIS HEPATIC DISEASE
     Dosage: 500 MG, BID
     Route: 048
     Dates: start: 2010
  10. HYDROCHLORTHIAZID [Concomitant]
     Active Substance: HYDROCHLOROTHIAZIDE
     Indication: HYPERTENSION
     Dosage: 12.5 MG, QD
     Route: 048
     Dates: start: 2010
  11. PULMOZYME [Concomitant]
     Active Substance: DORNASE ALFA
     Indication: CYSTIC FIBROSIS LUNG
     Dosage: UNK, QD
     Route: 055
     Dates: start: 2010
  12. CAYSTON [Concomitant]
     Active Substance: AZTREONAM
     Indication: CYSTIC FIBROSIS LUNG
     Dosage: 75 MG, BID
     Route: 055
     Dates: start: 20170214
  13. MAGNESIUM [Concomitant]
     Active Substance: MAGNESIUM
     Dosage: 300 MG, QD
     Route: 048
     Dates: start: 20170509

REACTIONS (1)
  - Blood creatine phosphokinase increased [Recovered/Resolved]

NARRATIVE: CASE EVENT DATE: 20170530
